FAERS Safety Report 26080406 (Version 2)
Quarter: 2025Q4

REPORT INFORMATION
  Report Type: Report from Study
  Country: CA (occurrence: CA)
  Receive Date: 20251124
  Receipt Date: 20251229
  Transmission Date: 20260117
  Serious: Yes (Hospitalization)
  Sender: ABBVIE
  Company Number: CA-ABBVIE-6475731

PATIENT
  Age: 70 Year
  Sex: Male

DRUGS (1)
  1. RINVOQ [Suspect]
     Active Substance: UPADACITINIB
     Indication: Crohn^s disease
     Dosage: FORM STRENGTH 15MG?DOSE FORM- PILLULES
     Route: 048

REACTIONS (3)
  - Fall [Not Recovered/Not Resolved]
  - Ileostomy [Unknown]
  - Surgery [Unknown]

NARRATIVE: CASE EVENT DATE: 20251011
